FAERS Safety Report 25130471 (Version 3)
Quarter: 2025Q2

REPORT INFORMATION
  Report Type: Spontaneous
  Country: JP (occurrence: JP)
  Receive Date: 20250327
  Receipt Date: 20250520
  Transmission Date: 20250717
  Serious: Yes (Death, Hospitalization)
  Sender: ROCHE
  Company Number: JP-CHUGAI-2025010002

PATIENT
  Age: 59 Year
  Sex: Female
  Weight: 53.3 kg

DRUGS (23)
  1. TECENTRIQ [Suspect]
     Active Substance: ATEZOLIZUMAB
     Indication: Hepatocellular carcinoma
     Route: 042
     Dates: start: 20230623, end: 20231031
  2. AVASTIN [Suspect]
     Active Substance: BEVACIZUMAB
     Indication: Hepatocellular carcinoma
     Route: 042
     Dates: start: 20230623, end: 20231031
  3. SPIRONOLACTONE [Concomitant]
     Active Substance: SPIRONOLACTONE
     Route: 048
     Dates: start: 20230718
  4. OMEPRAZOLE [Concomitant]
     Active Substance: OMEPRAZOLE
     Route: 048
     Dates: start: 20230718
  5. FUROSEMIDE [Concomitant]
     Active Substance: FUROSEMIDE
     Route: 048
     Dates: start: 20230718
  6. RIFAXIMIN [Concomitant]
     Active Substance: RIFAXIMIN
     Route: 048
     Dates: start: 20230718
  7. ISOLEUCINE;LEUCINE;VALINE [Concomitant]
     Route: 048
     Dates: start: 20230718
  8. PREDNISOLONE [Concomitant]
     Active Substance: PREDNISOLONE
     Route: 048
     Dates: start: 20230718
  9. KETOPROFEN [Concomitant]
     Active Substance: KETOPROFEN
     Route: 050
     Dates: start: 20230718
  10. ALENDRONATE [Concomitant]
     Active Substance: ALENDRONATE SODIUM
     Route: 048
     Dates: start: 20230718
  11. MAGNESIUM OXIDE [Concomitant]
     Active Substance: MAGNESIUM OXIDE
     Route: 048
     Dates: start: 20230718
  12. AMINOLEBAN EN [ALANINE;ARGININE HYDROCHLORIDE;GLYCINE;ISOLEUCINE;METHI [Concomitant]
     Route: 048
     Dates: start: 20230718
  13. LAGNOS NF [Concomitant]
     Route: 048
     Dates: start: 20230718
  14. TAPENTADOL HYDROCHLORIDE [Concomitant]
     Active Substance: TAPENTADOL HYDROCHLORIDE
     Route: 048
     Dates: start: 20230718
  15. OXYCODONE HYDROCHLORIDE [Concomitant]
     Active Substance: OXYCODONE HYDROCHLORIDE
     Route: 048
     Dates: start: 20230718
  16. PREGABALIN [Concomitant]
     Active Substance: PREGABALIN
     Route: 048
     Dates: start: 20230718
  17. SYMPROIC [Concomitant]
     Active Substance: NALDEMEDINE TOSYLATE
     Route: 048
     Dates: start: 20230718
  18. DULOXETINE HYDROCHLORIDE [Concomitant]
     Active Substance: DULOXETINE HYDROCHLORIDE
     Route: 048
     Dates: start: 20230718
  19. DICLOFENAC SODIUM [Concomitant]
     Active Substance: DICLOFENAC SODIUM
     Route: 048
     Dates: start: 20230718
  20. FLUVASTATIN SODIUM [Concomitant]
     Active Substance: FLUVASTATIN SODIUM
     Route: 048
     Dates: start: 20230704
  21. EMPAGLIFLOZIN\LINAGLIPTIN [Concomitant]
     Active Substance: EMPAGLIFLOZIN\LINAGLIPTIN
     Route: 048
     Dates: start: 20230704
  22. GLUBES OD [Concomitant]
     Route: 048
     Dates: start: 20230704
  23. LANTUS SOLOSTAR [Concomitant]
     Active Substance: INSULIN GLARGINE
     Route: 065
     Dates: start: 20230704

REACTIONS (3)
  - Myocarditis [Fatal]
  - Cirrhosis alcoholic [Fatal]
  - Hepatic encephalopathy [Unknown]

NARRATIVE: CASE EVENT DATE: 20231113
